FAERS Safety Report 10583376 (Version 1)
Quarter: 2014Q4

REPORT INFORMATION
  Report Type: Spontaneous
  Country: US (occurrence: None)
  Receive Date: 20141112
  Receipt Date: 20141112
  Transmission Date: 20150529
  Serious: Yes (Other)
  Sender: FDA-Public Use
  Company Number: 20140720

PATIENT
  Age: 61 Year
  Sex: Female

DRUGS (1)
  1. INJECTAFER [Suspect]
     Active Substance: FERRIC CARBOXYMALTOSE
     Indication: IRON DEFICIENCY ANAEMIA
     Dosage: INFUSED OVER 3 HOURS
     Route: 042
     Dates: start: 20141017, end: 20141024

REACTIONS (13)
  - Constipation [None]
  - Mobility decreased [None]
  - Dermal cyst [None]
  - Back pain [None]
  - Activities of daily living impaired [None]
  - Abdominal pain upper [None]
  - Migraine [None]
  - Serum ferritin increased [None]
  - Haemoglobin decreased [None]
  - Iron overload [None]
  - Headache [None]
  - Decreased appetite [None]
  - Asthenia [None]

NARRATIVE: CASE EVENT DATE: 20141024
